FAERS Safety Report 7061994-1 (Version None)
Quarter: 2010Q4

REPORT INFORMATION
  Report Type: 
  Country: None (occurrence: None)
  Receive Date: 20101026
  Receipt Date: 20101019
  Transmission Date: 20110411
  Serious: No
  Sender: FDA-Public Use
  Company Number: JP-BRISTOL-MYERS SQUIBB COMPANY-14920797

PATIENT
  Age: 37 Year
  Sex: Female
  Weight: 50 kg

DRUGS (18)
  1. ABILIFY [Suspect]
     Indication: AFFECT LABILITY
     Dosage: 12MG 13SEP-10OCT06(28D),30MG 11-24OCT06(14D),24MG 8NOV06-27MAR07(140D),18MG 28MAR-31JUL07(126D).
     Route: 048
     Dates: start: 20060913
  2. ABILIFY [Suspect]
     Indication: DEPRESSIVE SYMPTOM
     Dosage: 12MG 13SEP-10OCT06(28D),30MG 11-24OCT06(14D),24MG 8NOV06-27MAR07(140D),18MG 28MAR-31JUL07(126D).
     Route: 048
     Dates: start: 20060913
  3. ABILIFY [Suspect]
     Indication: PERSONALITY DISORDER
     Dosage: 12MG 13SEP-10OCT06(28D),30MG 11-24OCT06(14D),24MG 8NOV06-27MAR07(140D),18MG 28MAR-31JUL07(126D).
     Route: 048
     Dates: start: 20060913
  4. ABILIFY [Suspect]
     Indication: SCHIZOPHRENIA
     Dosage: 12MG 13SEP-10OCT06(28D),30MG 11-24OCT06(14D),24MG 8NOV06-27MAR07(140D),18MG 28MAR-31JUL07(126D).
     Route: 048
     Dates: start: 20060913
  5. ABILIFY [Suspect]
     Dosage: 12MG 13SEP-10OCT06(28D),30MG 11-24OCT06(14D),24MG 8NOV06-27MAR07(140D),18MG 28MAR-31JUL07(126D).
     Route: 048
     Dates: start: 20060913
  6. DEPROMEL [Suspect]
     Indication: AFFECT LABILITY
     Dosage: FORM: TABS
     Route: 048
     Dates: start: 20060101
  7. DEPROMEL [Suspect]
     Indication: DEPRESSIVE SYMPTOM
     Dosage: FORM: TABS
     Route: 048
     Dates: start: 20060101
  8. DEPROMEL [Suspect]
     Indication: PERSONALITY DISORDER
     Dosage: FORM: TABS
     Route: 048
     Dates: start: 20060101
  9. MIRADOL [Suspect]
     Indication: AFFECT LABILITY
     Dosage: FORM: TABLET; PREVIOUS TID 50MG
     Route: 048
     Dates: start: 20060101
  10. MIRADOL [Suspect]
     Indication: DEPRESSIVE SYMPTOM
     Dosage: FORM: TABLET; PREVIOUS TID 50MG
     Route: 048
     Dates: start: 20060101
  11. MIRADOL [Suspect]
     Indication: PERSONALITY DISORDER
     Dosage: FORM: TABLET; PREVIOUS TID 50MG
     Route: 048
     Dates: start: 20060101
  12. LULLAN [Suspect]
     Indication: AFFECT LABILITY
     Dosage: FORM : TABLET
     Route: 048
     Dates: start: 20060101
  13. LULLAN [Suspect]
     Indication: DEPRESSIVE SYMPTOM
     Dosage: FORM : TABLET
     Route: 048
     Dates: start: 20060101
  14. LULLAN [Suspect]
     Indication: PERSONALITY DISORDER
     Dosage: FORM : TABLET
     Route: 048
     Dates: start: 20060101
  15. SEROQUEL [Suspect]
     Indication: AFFECT LABILITY
     Dosage: FORM : TABLET
     Route: 048
     Dates: start: 20060101
  16. SEROQUEL [Suspect]
     Indication: DEPRESSIVE SYMPTOM
     Dosage: FORM : TABLET
     Route: 048
     Dates: start: 20060101
  17. SEROQUEL [Suspect]
     Indication: PERSONALITY DISORDER
     Dosage: FORM : TABLET
     Route: 048
     Dates: start: 20060101
  18. BENZALIN [Suspect]
     Indication: INSOMNIA
     Dosage: FORM: TABLET
     Route: 048
     Dates: start: 20060101

REACTIONS (2)
  - NORMAL NEWBORN [None]
  - PREGNANCY [None]
